FAERS Safety Report 23544968 (Version 2)
Quarter: 2024Q2

REPORT INFORMATION
  Report Type: Report from Study
  Country: GB (occurrence: GB)
  Receive Date: 20240220
  Receipt Date: 20240401
  Transmission Date: 20240716
  Serious: No
  Sender: FDA-Public Use
  Company Number: GB-ROCHE-3181521

PATIENT
  Age: 66 Year
  Sex: Female
  Weight: 100.8 kg

DRUGS (24)
  1. CARBOPLATIN [Suspect]
     Active Substance: CARBOPLATIN
     Indication: Small cell lung cancer extensive stage
     Dosage: 500MG
     Route: 065
     Dates: start: 20220728
  2. ATEZOLIZUMAB [Suspect]
     Active Substance: ATEZOLIZUMAB
     Indication: Small cell lung cancer extensive stage
     Dosage: 1200MG
     Route: 041
     Dates: start: 20220728
  3. ETOPOSIDE [Suspect]
     Active Substance: ETOPOSIDE
     Indication: Small cell lung cancer extensive stage
     Dosage: 170MG
     Route: 042
     Dates: start: 20220728
  4. ETOPOSIDE [Suspect]
     Active Substance: ETOPOSIDE
     Dosage: 700 MG
     Route: 048
     Dates: start: 20220908
  5. LORATADINE [Concomitant]
     Active Substance: LORATADINE
     Dosage: 1 DF, AS NEEDED
     Route: 065
     Dates: start: 200803
  6. DEXAMETHASONE [Concomitant]
     Active Substance: DEXAMETHASONE
     Dosage: 2X/DAY
     Route: 065
     Dates: start: 20220818, end: 20220820
  7. DEXAMETHASONE [Concomitant]
     Active Substance: DEXAMETHASONE
     Dosage: 2X/DAY
     Route: 065
     Dates: start: 20220729, end: 20220901
  8. DEXAMETHASONE [Concomitant]
     Active Substance: DEXAMETHASONE
     Dosage: 2X/DAY
     Route: 065
     Dates: start: 20220908, end: 20220910
  9. DEXAMETHASONE [Concomitant]
     Active Substance: DEXAMETHASONE
     Dosage: UNK
     Dates: start: 20220929, end: 20221002
  10. DOMPERIDONE [Concomitant]
     Active Substance: DOMPERIDONE
     Dosage: UNK, 3X/DAY
     Route: 065
     Dates: start: 20220728, end: 20220731
  11. DOMPERIDONE [Concomitant]
     Active Substance: DOMPERIDONE
     Dosage: 3X/DAY
     Route: 065
     Dates: start: 20220817, end: 20220819
  12. DOMPERIDONE [Concomitant]
     Active Substance: DOMPERIDONE
     Dosage: 3X/DAY
     Route: 065
     Dates: start: 20220907, end: 20220909
  13. DOMPERIDONE [Concomitant]
     Active Substance: DOMPERIDONE
     Dosage: UNK, 3X/DAY
     Route: 065
     Dates: start: 20220928, end: 20221001
  14. DOMPERIDONE [Concomitant]
     Active Substance: DOMPERIDONE
     Dosage: UNK
     Dates: start: 20221102
  15. FILGRASTIM [Concomitant]
     Active Substance: FILGRASTIM
     Dosage: UNK, 1X/DAY
     Route: 065
     Dates: start: 20220801, end: 20220805
  16. FILGRASTIM [Concomitant]
     Active Substance: FILGRASTIM
     Dosage: 1X/DAY
     Route: 065
     Dates: start: 20220821, end: 20220825
  17. FILGRASTIM [Concomitant]
     Active Substance: FILGRASTIM
     Dosage: 1X/DAY
     Route: 065
     Dates: start: 20220907, end: 20220911
  18. FILGRASTIM [Concomitant]
     Active Substance: FILGRASTIM
     Dosage: UNK, 1X/DAY
     Route: 065
     Dates: start: 20220928, end: 20221002
  19. INSULIN NOS [Concomitant]
     Active Substance: INSULIN NOS
     Dosage: 1 DF, AS NEEDED
     Route: 065
     Dates: start: 198601
  20. ONDANSETRON [Concomitant]
     Active Substance: ONDANSETRON
     Dosage: 8 MG
     Route: 065
     Dates: start: 20220728, end: 20220728
  21. ONDANSETRON [Concomitant]
     Active Substance: ONDANSETRON
     Dosage: 8 MG
     Route: 065
     Dates: start: 20220817, end: 20220817
  22. ONDANSETRON [Concomitant]
     Active Substance: ONDANSETRON
     Dosage: 8MG 1X/DAY
     Route: 065
     Dates: start: 20220907, end: 20220907
  23. ONDANSETRON [Concomitant]
     Active Substance: ONDANSETRON
     Dosage: 8 MG
     Route: 065
     Dates: start: 20220928, end: 20220928
  24. QUININE [Concomitant]
     Active Substance: QUININE
     Dosage: UNK, 1X/DAY
     Route: 065
     Dates: start: 20220826

REACTIONS (4)
  - Muscle spasms [Recovered/Resolved]
  - Pollakiuria [Not Recovered/Not Resolved]
  - Constipation [Recovered/Resolved]
  - Dyspnoea exertional [Recovered/Resolved]

NARRATIVE: CASE EVENT DATE: 20220801
